FAERS Safety Report 25107627 (Version 2)
Quarter: 2025Q3

REPORT INFORMATION
  Report Type: Spontaneous
  Country: EU (occurrence: EU)
  Receive Date: 20250322
  Receipt Date: 20250815
  Transmission Date: 20251021
  Serious: Yes (Disabling, Other)
  Sender: ABBVIE
  Company Number: EU-ABBVIE-6188298

PATIENT
  Age: 43 Year
  Sex: Female

DRUGS (4)
  1. HUMIRA [Suspect]
     Active Substance: ADALIMUMAB
     Indication: Rheumatoid arthritis
     Route: 058
     Dates: start: 20190108, end: 20190820
  2. PREDNISOLONE [Concomitant]
     Active Substance: PREDNISOLONE
     Indication: Product used for unknown indication
  3. ARCOXIA [Concomitant]
     Active Substance: ETORICOXIB
     Indication: Product used for unknown indication
  4. ACETAMINOPHEN [Concomitant]
     Active Substance: ACETAMINOPHEN
     Indication: Product used for unknown indication

REACTIONS (22)
  - Tinnitus [Not Recovered/Not Resolved]
  - Deafness [Not Recovered/Not Resolved]
  - Depression [Not Recovered/Not Resolved]
  - Poor quality sleep [Not Recovered/Not Resolved]
  - Arthralgia [Unknown]
  - Fatigue [Not Recovered/Not Resolved]
  - Depressed mood [Not Recovered/Not Resolved]
  - Asocial behaviour [Not Recovered/Not Resolved]
  - Drug ineffective [Unknown]
  - Impaired work ability [Unknown]
  - Arthralgia [Unknown]
  - Pain [Unknown]
  - Pain [Unknown]
  - Coronavirus infection [Unknown]
  - Asthenia [Unknown]
  - Weight increased [Unknown]
  - Cholecystectomy [Unknown]
  - Sleep apnoea syndrome [Unknown]
  - Headache [Unknown]
  - Loss of personal independence in daily activities [Unknown]
  - C-reactive protein increased [Unknown]
  - Inner ear inflammation [Unknown]

NARRATIVE: CASE EVENT DATE: 20190101
